FAERS Safety Report 18730631 (Version 3)
Quarter: 2021Q1

REPORT INFORMATION
  Report Type: Spontaneous
  Country: PL (occurrence: PL)
  Receive Date: 20210112
  Receipt Date: 20210216
  Transmission Date: 20210419
  Serious: Yes (Other)
  Sender: FDA-Public Use
  Company Number: PL-BEH-2021126984

PATIENT
  Age: 30 Year
  Sex: Female
  Weight: 63 kg

DRUGS (5)
  1. MAGNESIUM [Concomitant]
     Active Substance: MAGNESIUM
     Dosage: UNK
     Dates: start: 20210116, end: 20210118
  2. FLUOMIZIN [Concomitant]
     Active Substance: DEQUALINIUM CHLORIDE
     Dosage: 1 TABLET
     Route: 067
     Dates: start: 20210118
  3. ANTI?D IMMUNOGLOBULIN (INN) [Suspect]
     Active Substance: HUMAN RHO(D) IMMUNE GLOBULIN
     Dosage: 150 MICROGRAM, TOT
     Route: 065
     Dates: start: 20201207, end: 20201207
  4. LUTEIN + [Concomitant]
     Dosage: UNK, QD
     Route: 067
     Dates: start: 20210116, end: 20210118
  5. PROGESTERON [Concomitant]
     Active Substance: PROGESTERONE
     Dosage: UNK, QD
     Dates: start: 20210105, end: 20210115

REACTIONS (2)
  - Exposure during pregnancy [Unknown]
  - Anti-erythrocyte antibody positive [Unknown]

NARRATIVE: CASE EVENT DATE: 20201229
